FAERS Safety Report 23658797 (Version 1)
Quarter: 2024Q1

REPORT INFORMATION
  Report Type: Spontaneous
  Country: ES (occurrence: ES)
  Receive Date: 20240321
  Receipt Date: 20240321
  Transmission Date: 20240410
  Serious: Yes (Hospitalization)
  Sender: FDA-Public Use
  Company Number: ES-002147023-NVSC2024ES059534

PATIENT
  Age: 60 Year
  Sex: Male

DRUGS (2)
  1. SECUKINUMAB [Suspect]
     Active Substance: SECUKINUMAB
     Indication: IgA nephropathy
     Dosage: 300 MG, WEEKS 0, 1, 2, 3, AND 4, INDUCTION PHASE AND MONTHLY FOR MAINTENANCE
     Route: 058
  2. ZEMPLAR [Suspect]
     Active Substance: PARICALCITOL
     Indication: IgA nephropathy
     Dosage: 1 UG, QD, FOR AT LEAST 6 MONTHS BEFORE ADDING SECUKINUMAB
     Route: 065

REACTIONS (4)
  - COVID-19 [Unknown]
  - Urinary tract candidiasis [Recovered/Resolved]
  - Product use in unapproved indication [Unknown]
  - Drug ineffective [Unknown]
